FAERS Safety Report 8133575 (Version 3)
Quarter: 2013Q2

REPORT INFORMATION
  Report Type: Spontaneous
  Country: US (occurrence: US)
  Receive Date: 20110913
  Receipt Date: 20130517
  Transmission Date: 20140414
  Serious: Yes (Hospitalization, Other)
  Sender: FDA-Public Use
  Company Number: PHHY2011US79873

PATIENT
  Age: 28 Year
  Sex: Male

DRUGS (7)
  1. CLOZAPINE [Suspect]
     Dosage: 12.5 MG, DAILY
  2. CLOZAPINE [Suspect]
     Dosage: 125 MG, DAILY
  3. AMOXICILLIN W/CLAVULANIC ACID [Concomitant]
     Indication: LOCALISED INFECTION
  4. LITHIUM [Concomitant]
  5. PREDNISONE [Concomitant]
  6. VALPROATE SEMISODIUM [Concomitant]
  7. PERPHENAZINE [Concomitant]

REACTIONS (12)
  - Renal failure acute [Recovered/Resolved]
  - Blood creatinine increased [Unknown]
  - Blood urea increased [Unknown]
  - Tubulointerstitial nephritis [Unknown]
  - Pyrexia [Recovered/Resolved]
  - White blood cell count increased [Unknown]
  - Neutrophil count increased [Unknown]
  - Eosinophil count increased [Unknown]
  - Protein urine present [Unknown]
  - Blood calcium decreased [Unknown]
  - Protein total decreased [Unknown]
  - Headache [Unknown]
